FAERS Safety Report 4709215-6 (Version None)
Quarter: 2005Q3

REPORT INFORMATION
  Report Type: 
  Country: None (occurrence: None)
  Receive Date: 20050705
  Receipt Date: 20050623
  Transmission Date: 20060218
  Serious: Yes (Hospitalization, Other)
  Sender: FDA-Public Use
  Company Number: 215317

PATIENT
  Age: 66 Year
  Sex: Female

DRUGS (9)
  1. XOLAIR [Suspect]
     Indication: ASTHMA
     Dates: start: 20050101
  2. ADVAIR (SALMETEROL XINAFOATE, FLUTICASONE PROPIONATE) [Concomitant]
  3. PRAVACHOL [Concomitant]
  4. LOPRESSOR [Concomitant]
  5. CAPOTEN [Concomitant]
  6. ASPIRIN [Concomitant]
  7. ZANTAC [Concomitant]
  8. DIGOXIN [Concomitant]
  9. HYDROCHLOROTHIAZIDE [Concomitant]

REACTIONS (19)
  - ABDOMINAL DISTENSION [None]
  - ALLERGIC GRANULOMATOUS ANGIITIS [None]
  - DIASTOLIC DYSFUNCTION [None]
  - DISEASE RECURRENCE [None]
  - EOSINOPHILIA [None]
  - HILAR LYMPHADENOPATHY [None]
  - LUNG NEOPLASM [None]
  - LYMPHADENOPATHY MEDIASTINAL [None]
  - LYMPHOMA [None]
  - LYMPHOPROLIFERATIVE DISORDER [None]
  - OEDEMA PERIPHERAL [None]
  - PERICARDIAL EFFUSION [None]
  - PLEURAL EFFUSION [None]
  - PULMONARY HYPERTENSION [None]
  - PULMONARY TUBERCULOSIS [None]
  - RED BLOOD CELL SEDIMENTATION RATE INCREASED [None]
  - RHEUMATOID FACTOR INCREASED [None]
  - WEIGHT DECREASED [None]
  - WHITE BLOOD CELL COUNT INCREASED [None]
